FAERS Safety Report 19385560 (Version 1)
Quarter: 2021Q2

REPORT INFORMATION
  Report Type: Spontaneous
  Country: US (occurrence: US)
  Receive Date: 20210608
  Receipt Date: 20210608
  Transmission Date: 20210717
  Serious: No
  Sender: FDA-Public Use
  Company Number: US-JNJFOC-20210550085

PATIENT
  Age: 81 Year
  Sex: Male

DRUGS (1)
  1. TYLENOL [Suspect]
     Active Substance: ACETAMINOPHEN
     Indication: ARTHRITIS
     Dosage: 2X DAY TWICE A DAY
     Route: 065
     Dates: start: 20201225

REACTIONS (1)
  - Contusion [Not Recovered/Not Resolved]
